FAERS Safety Report 17122171 (Version 1)
Quarter: 2019Q4

REPORT INFORMATION
  Report Type: Spontaneous
  Country: US (occurrence: US)
  Receive Date: 20191206
  Receipt Date: 20191206
  Transmission Date: 20200122
  Serious: No
  Sender: FDA-Public Use
  Company Number: US-FRESENIUS KABI-FK201913274

PATIENT

DRUGS (1)
  1. AMIODARONE HYDROCHLORIDE. [Suspect]
     Active Substance: AMIODARONE HYDROCHLORIDE
     Indication: PULSELESS ELECTRICAL ACTIVITY
     Dosage: LOADING BOLUS DOSE

REACTIONS (4)
  - Incorrect drug administration rate [Unknown]
  - No adverse event [Recovered/Resolved]
  - Product use in unapproved indication [Unknown]
  - Product preparation error [Unknown]
